FAERS Safety Report 5763875-X (Version None)
Quarter: 2008Q2

REPORT INFORMATION
  Report Type: 
  Country: None (occurrence: None)
  Receive Date: 20080602
  Receipt Date: 20080129
  Transmission Date: 20081010
  Serious: Yes (Other)
  Sender: FDA-Public Use
  Company Number: PHEH2007US14497

PATIENT
  Age: 57 Year
  Sex: Female
  Weight: 94.8 kg

DRUGS (6)
  1. TEKTURNA [Suspect]
     Indication: HYPERTENSION
     Dosage: 150 MG, QD, ORAL
     Route: 048
     Dates: start: 20071102, end: 20071104
  2. LABETALOL HCL [Concomitant]
  3. PROTONIX [Concomitant]
  4. LEVAPRO (ESCITALOPRAM OXALATE) [Concomitant]
  5. LEVODOPA-CARBIDOPA (CARBIDOPA, LEVODOPA) [Concomitant]
  6. NASACORT [Concomitant]

REACTIONS (1)
  - EYE SWELLING [None]
